FAERS Safety Report 4695717-8 (Version None)
Quarter: 2005Q2

REPORT INFORMATION
  Report Type: 
  Country: None (occurrence: None)
  Receive Date: 20050621
  Receipt Date: 20050610
  Transmission Date: 20051028
  Serious: Yes (Hospitalization)
  Sender: FDA-Public Use
  Company Number: JP-JNJFOC-20050106958

PATIENT
  Sex: Male
  Weight: 53 kg

DRUGS (23)
  1. REMICADE [Suspect]
     Route: 042
  2. REMICADE [Suspect]
     Indication: RHEUMATOID ARTHRITIS
     Route: 042
  3. RHEUMATREX [Suspect]
     Route: 049
  4. RHEUMATREX [Suspect]
     Route: 049
  5. RHEUMATREX [Suspect]
     Indication: RHEUMATOID ARTHRITIS
     Route: 049
  6. PREDNISOLONE [Concomitant]
     Route: 049
  7. PREDNISOLONE [Concomitant]
     Route: 049
  8. PREDNISOLONE [Concomitant]
     Route: 049
  9. PREDNISOLONE [Concomitant]
     Route: 049
  10. PREDNISOLONE [Concomitant]
     Route: 049
  11. PREDNISOLONE [Concomitant]
     Route: 049
  12. PREDNISOLONE [Concomitant]
     Route: 049
  13. PREDNISOLONE [Concomitant]
     Route: 049
  14. PREDNISOLONE [Concomitant]
     Route: 049
  15. PREDNISOLONE [Concomitant]
     Indication: RHEUMATOID ARTHRITIS
     Route: 049
  16. LOXONIN [Concomitant]
     Indication: RHEUMATOID ARTHRITIS
     Route: 049
  17. INTEBAN [Concomitant]
     Indication: RHEUMATOID ARTHRITIS
  18. FOLIAMIN [Concomitant]
     Route: 049
  19. DAONIL [Concomitant]
     Route: 049
  20. ACTOS [Concomitant]
     Route: 049
  21. MUCOSTA [Concomitant]
     Indication: PROPHYLAXIS
     Route: 049
  22. GLUCOBAY [Concomitant]
     Route: 049
  23. ADOFEED [Concomitant]

REACTIONS (3)
  - INTERSTITIAL LUNG DISEASE [None]
  - PNEUMOCYSTIS JIROVECI INFECTION [None]
  - PNEUMONIA PNEUMOCOCCAL [None]
